FAERS Safety Report 5115783-5 (Version None)
Quarter: 2006Q3

REPORT INFORMATION
  Report Type: 
  Country: None (occurrence: None)
  Receive Date: 20060926
  Receipt Date: 20060926
  Transmission Date: 20061208
  Serious: No
  Sender: FDA-Public Use
  Company Number: None

PATIENT
  Age: 51 Year
  Sex: Female
  Weight: 49.8957 kg

DRUGS (2)
  1. DELESTROGEN [Suspect]
     Indication: BLOOD OESTROGEN DECREASED
     Dosage: 5 MG ONCE A MONTH
     Dates: start: 20060920
  2. DELESTROGEN [Suspect]
     Indication: OSTEOPOROSIS
     Dosage: 5 MG ONCE A MONTH
     Dates: start: 20060920

REACTIONS (1)
  - INJECTION SITE URTICARIA [None]
